FAERS Safety Report 5605208-5 (Version None)
Quarter: 2008Q1

REPORT INFORMATION
  Report Type: 
  Country: None (occurrence: None)
  Receive Date: 20080128
  Receipt Date: 20080117
  Transmission Date: 20080703
  Serious: Yes (Hospitalization, Other)
  Sender: FDA-Public Use
  Company Number: FR-PFIZER INC-2008006080

PATIENT

DRUGS (1)
  1. ZOLOFT [Suspect]
     Route: 064
     Dates: start: 20060101, end: 20060101

REACTIONS (5)
  - APNOEA [None]
  - DRUG EXPOSURE DURING PREGNANCY [None]
  - HYPOTONIA [None]
  - OXYGEN SATURATION DECREASED [None]
  - VOMITING [None]
